FAERS Safety Report 7304265-8 (Version None)
Quarter: 2011Q1

REPORT INFORMATION
  Report Type: 
  Country: None (occurrence: None)
  Receive Date: 20110221
  Receipt Date: 20110208
  Transmission Date: 20110831
  Serious: Yes (Hospitalization)
  Sender: FDA-Public Use
  Company Number: PHHY2011US09999

PATIENT

DRUGS (13)
  1. HEPARIN [Concomitant]
     Indication: PROPHYLAXIS
     Dosage: 5000 IU, BID
  2. HYDROXYCHLOROQUINE [Concomitant]
  3. QUINAPRIL [Concomitant]
  4. SODIUM BICARBONATE [Concomitant]
  5. LOSARTAN [Concomitant]
  6. AZATHIOPRINE [Concomitant]
  7. OMEPRAZOLE [Concomitant]
  8. FEMARA [Suspect]
  9. ESTRADIOL [Concomitant]
  10. PREDNISONE [Concomitant]
  11. GANIRELIX ACETATE INJECTION [Concomitant]
  12. MYFORTIC [Suspect]
  13. ATORVASTATIN [Concomitant]

REACTIONS (10)
  - FATIGUE [None]
  - OVARIAN HYPERSTIMULATION SYNDROME [None]
  - RENAL IMPAIRMENT [None]
  - OVARIAN ENLARGEMENT [None]
  - ABDOMINAL DISTENSION [None]
  - HYPERKALAEMIA [None]
  - ASCITES [None]
  - ABDOMINAL PAIN [None]
  - HYPONATRAEMIA [None]
  - PROTEINURIA [None]
